APPROVED DRUG PRODUCT: GEMCITABINE HYDROCHLORIDE
Active Ingredient: GEMCITABINE HYDROCHLORIDE
Strength: EQ 1GM BASE/VIAL
Dosage Form/Route: INJECTABLE;INJECTION
Application: A207575 | Product #002 | TE Code: AP
Applicant: SHILPA MEDICARE LTD
Approved: Feb 22, 2019 | RLD: No | RS: No | Type: RX